FAERS Safety Report 8892240 (Version 1)
Quarter: 2012Q4

REPORT INFORMATION
  Report Type: 
  Country: US (occurrence: US)
  Receive Date: 20121107
  Receipt Date: 20121107
  Transmission Date: 20130627
  Serious: No
  Sender: FDA-Public Use
  Company Number: US-AMGEN-USASP2011055480

PATIENT
  Age: 68 Year
  Sex: Female
  Weight: 63.49 kg

DRUGS (15)
  1. ENBREL [Suspect]
     Indication: PRODUCT USED FOR UNKNOWN INDICATION
     Dosage: 50 mg, qwk
     Route: 058
  2. EFFEXOR [Concomitant]
     Dosage: 25 mg, UNK
  3. REMERON [Concomitant]
     Dosage: 15 mg, UNK
  4. FLUTICASONE [Concomitant]
  5. LYRICA [Concomitant]
     Dosage: 25 mg, UNK
  6. CHLORPHENIRAMINE MALEATE [Concomitant]
     Dosage: 4 mg, UNK
  7. INDOMETHACIN [Concomitant]
     Dosage: 25 mg, UNK
  8. ISONIAZID [Concomitant]
     Dosage: 100 mg, UNK
  9. VITAMIN C [Concomitant]
     Dosage: 500 mg, UNK
  10. SULFASALAZIN [Concomitant]
     Dosage: 500 mg, UNK
  11. CLARITIN [Concomitant]
     Dosage: 10 mg, UNK
  12. FISH OIL [Concomitant]
  13. CITRACAL + D [Concomitant]
  14. VITAMIN D3 [Concomitant]
  15. BIOTIN [Concomitant]
     Dosage: 5 mg, UNK

REACTIONS (2)
  - Hyperhidrosis [Unknown]
  - Feeling hot [Unknown]
